FAERS Safety Report 16349871 (Version 1)
Quarter: 2019Q2

REPORT INFORMATION
  Report Type: Spontaneous
  Country: US (occurrence: US)
  Receive Date: 20190523
  Receipt Date: 20190523
  Transmission Date: 20190711
  Serious: Yes (Hospitalization)
  Sender: FDA-Public Use
  Company Number: US-PFIZER INC-2019219534

PATIENT
  Sex: Male

DRUGS (1)
  1. XELJANZ [Suspect]
     Active Substance: TOFACITINIB CITRATE
     Indication: COLITIS ULCERATIVE
     Dosage: UNK

REACTIONS (5)
  - Pain in extremity [Unknown]
  - Eyelid pain [Unknown]
  - Arthralgia [Unknown]
  - Urticaria [Unknown]
  - Oral pain [Unknown]

NARRATIVE: CASE EVENT DATE: 20190515
